FAERS Safety Report 18869861 (Version 1)
Quarter: 2021Q1

REPORT INFORMATION
  Report Type: Other
  Country: ES (occurrence: ES)
  Receive Date: 20210210
  Receipt Date: 20210210
  Transmission Date: 20210420
  Serious: Yes (Life-Threatening, Hospitalization, Other)
  Sender: FDA-Public Use
  Company Number: ES-DENTSPLY-2021SCDP000033

PATIENT
  Age: 42 Year
  Sex: Female
  Weight: 42 kg

DRUGS (1)
  1. LIDOCAINE. [Suspect]
     Active Substance: LIDOCAINE
     Indication: LOCAL ANAESTHESIA
     Dosage: 300 MILLIGRAM, TOTAL  OF LIDOCAINE 2%
     Route: 058

REACTIONS (10)
  - Neurotoxicity [Unknown]
  - Loss of consciousness [Unknown]
  - Pupils unequal [Recovered/Resolved]
  - Dry mouth [Unknown]
  - Local anaesthetic systemic toxicity [Unknown]
  - Cardiotoxicity [Recovered/Resolved]
  - Seizure [Recovered/Resolved]
  - Sinus tachycardia [Recovered/Resolved]
  - Muscle rigidity [Unknown]
  - Paraesthesia oral [Unknown]
